FAERS Safety Report 5947475-4 (Version None)
Quarter: 2008Q4

REPORT INFORMATION
  Report Type: 
  Country: None (occurrence: None)
  Receive Date: 20081110
  Receipt Date: 20081030
  Transmission Date: 20090506
  Serious: Yes (Hospitalization, Other)
  Sender: FDA-Public Use
  Company Number: PHHY2008FI26654

PATIENT
  Sex: Male

DRUGS (14)
  1. COMTESS [Suspect]
     Indication: PARKINSON'S DISEASE
     Dosage: 200 MG, BID
     Route: 048
     Dates: start: 20080626, end: 20080720
  2. COMTESS [Suspect]
     Indication: MOBILITY DECREASED
  3. SINEMET [Concomitant]
     Indication: PARKINSON'S DISEASE
     Dosage: 10/100 X 1AT 06:00
  4. SINEMET [Concomitant]
     Dosage: 25/100, 1X3 AT 08:00,12:00 AND 06:00
  5. SINEMET CR [Concomitant]
     Dosage: 50/200, 2X1
  6. SINEMET CR [Concomitant]
     Dosage: 25/100 2X1
  7. TRIMIPRAMINE MALEATE [Concomitant]
     Dosage: 10 MG NOCTE
  8. FINASTERIDE [Concomitant]
     Dosage: 5 MG DAILY
  9. TAMSULOSIN HCL [Concomitant]
     Dosage: 400 MG DAILY
  10. SENNA [Concomitant]
     Dosage: 2 NOCTE
  11. ASPIRIN [Concomitant]
     Dosage: 75 MG DAILY
  12. CITALOPRAM HYDROBROMIDE [Concomitant]
     Dosage: 10 MG DAILY
  13. SIMVASTATIN [Concomitant]
     Dosage: 40 MG NOCTE
  14. PERINDOPRIL [Concomitant]
     Dosage: 2 MG DAILY

REACTIONS (3)
  - COMA [None]
  - DRUG DOSE OMISSION [None]
  - SUDDEN ONSET OF SLEEP [None]
